FAERS Safety Report 11531172 (Version 1)
Quarter: 2015Q3

REPORT INFORMATION
  Report Type: Spontaneous
  Country: US (occurrence: US)
  Receive Date: 20150903
  Receipt Date: 20150903
  Transmission Date: 20151125
  Serious: Yes (Other)
  Sender: FDA-Public Use
  Company Number: US-ELI_LILLY_AND_COMPANY-US201306007356

PATIENT
  Age: 88 Year
  Sex: Male

DRUGS (2)
  1. CYMBALTA [Suspect]
     Active Substance: DULOXETINE HYDROCHLORIDE
     Indication: BACK PAIN
     Dosage: 30 MG, TID
     Route: 048
     Dates: end: 20130618
  2. CYMBALTA [Suspect]
     Active Substance: DULOXETINE HYDROCHLORIDE
     Indication: NEURALGIA

REACTIONS (9)
  - Abdominal distension [Unknown]
  - Headache [Unknown]
  - Abdominal pain [Unknown]
  - Arthralgia [Unknown]
  - Constipation [Unknown]
  - Incorrect product storage [Unknown]
  - Poor quality sleep [Unknown]
  - Coordination abnormal [Unknown]
  - Blood pressure increased [Unknown]

NARRATIVE: CASE EVENT DATE: 20130620
